FAERS Safety Report 5968931-9 (Version None)
Quarter: 2008Q4

REPORT INFORMATION
  Report Type: 
  Country: None (occurrence: None)
  Receive Date: 20081119
  Receipt Date: 20080725
  Transmission Date: 20090506
  Serious: No
  Sender: FDA-Public Use
  Company Number: WAES 0807USA05162

PATIENT
  Age: 59 Year
  Sex: Male
  Weight: 132.4503 kg

DRUGS (7)
  1. JANUVIA [Suspect]
     Indication: TYPE 2 DIABETES MELLITUS
     Dosage: 100 MG/DAILY/PO
     Route: 048
     Dates: start: 20080703, end: 20080708
  2. ALLOPRINOL [Concomitant]
  3. COUMADIN [Concomitant]
  4. LOPRESSOR [Concomitant]
  5. ZOCOR [Concomitant]
  6. COLCHICINE [Concomitant]
  7. GLIPIZIDE [Concomitant]

REACTIONS (2)
  - DYSPNOEA [None]
  - RASH [None]
